FAERS Safety Report 8292576 (Version 3)
Quarter: 2013Q2

REPORT INFORMATION
  Report Type: Spontaneous
  Country: US (occurrence: None)
  Receive Date: 20111122
  Receipt Date: 20120703
  Transmission Date: 20140414
  Serious: Yes (Hospitalization)
  Sender: FDA-Public Use
  Company Number: PHEH2011US02915

PATIENT
  Age: 57 Year
  Sex: Female

DRUGS (1)
  1. GILENYA [Suspect]
     Indication: MULTIPLE SCLEROSIS
     Dosage: 0.5 MG, DAILY, ORAL
     Route: 048
     Dates: start: 201102, end: 20110831

REACTIONS (4)
  - BRADYCARDIA [None]
  - BLOOD PRESSURE DECREASED [None]
  - DISTURBANCE IN ATTENTION [None]
  - FATIGUE [None]
